FAERS Safety Report 6337167-4 (Version None)
Quarter: 2009Q3

REPORT INFORMATION
  Report Type: 
  Country: None (occurrence: None)
  Receive Date: 20090831
  Receipt Date: 20090825
  Transmission Date: 20100115
  Serious: Yes (Hospitalization, Disabling, Congenital Anomaly)
  Sender: FDA-Public Use
  Company Number: 2009AL005624

PATIENT
  Age: 6 Hour
  Sex: Male

DRUGS (1)
  1. CITALOPRAM HYDROBROMIDE [Suspect]
     Indication: DEPRESSION
     Dosage: 20 MG; QD; TRPL
     Route: 064

REACTIONS (4)
  - CEREBRAL INFARCTION [None]
  - CEREBRAL PALSY [None]
  - MATERNAL DRUGS AFFECTING FOETUS [None]
  - TONIC CONVULSION [None]
